FAERS Safety Report 19011348 (Version 1)
Quarter: 2021Q1

REPORT INFORMATION
  Report Type: Report from Study
  Country: NL (occurrence: NL)
  Receive Date: 20210316
  Receipt Date: 20210316
  Transmission Date: 20210420
  Serious: Yes (Other)
  Sender: FDA-Public Use
  Company Number: NL-MYLANLABS-2020M1060511

PATIENT
  Age: 34 Year
  Sex: Female
  Weight: 88 kg

DRUGS (3)
  1. GLATIRAMEERACETAAT MYLAN 40 MG/ML [Suspect]
     Active Substance: GLATIRAMER ACETATE
     Dosage: UNK
  2. SUMATRIPTAN. [Concomitant]
     Active Substance: SUMATRIPTAN
     Indication: MIGRAINE
     Dosage: 1 DOSAGE FORM, QW (1X PER WEEK 1 TABLET)
     Route: 048
     Dates: start: 2020, end: 2020
  3. GLATIRAMEERACETAAT MYLAN 40 MG/ML [Suspect]
     Active Substance: GLATIRAMER ACETATE
     Indication: MULTIPLE SCLEROSIS
     Dosage: 40 MILLIGRAM, 3XW (THREE TIMES A WEEK)
     Route: 058
     Dates: start: 20200625

REACTIONS (7)
  - Rash [Not Recovered/Not Resolved]
  - Multiple sclerosis relapse [Unknown]
  - Gestational diabetes [Unknown]
  - Injection site reaction [Unknown]
  - Maternal exposure during pregnancy [Recovered/Resolved]
  - Gestational hypertension [Unknown]
  - Rash pruritic [Recovering/Resolving]

NARRATIVE: CASE EVENT DATE: 20200625
